FAERS Safety Report 4860584-6 (Version None)
Quarter: 2005Q4

REPORT INFORMATION
  Report Type: 
  Country: None (occurrence: None)
  Receive Date: 20051219
  Receipt Date: 20051209
  Transmission Date: 20060501
  Serious: Yes (Hospitalization)
  Sender: FDA-Public Use
  Company Number: NO-MERCK-0512NOR00011

PATIENT
  Age: 64 Year
  Sex: Female

DRUGS (17)
  1. VIOXX [Suspect]
     Indication: RHEUMATOID ARTHRITIS
     Route: 048
     Dates: start: 20000201, end: 20001001
  2. VIOXX [Suspect]
     Route: 048
     Dates: start: 20001001, end: 20010124
  3. VIOXX [Suspect]
     Route: 048
     Dates: start: 20010125, end: 20020615
  4. VIOXX [Suspect]
     Route: 048
     Dates: start: 20030101, end: 20041201
  5. OMEPRAZOLE [Concomitant]
     Indication: DUODENAL ULCER
     Route: 048
     Dates: start: 20020425
  6. CALCIUM CARBONATE AND CHOLECALCIFEROL [Concomitant]
     Indication: PROPHYLAXIS
     Route: 048
     Dates: start: 20020926
  7. NITROGLYCERIN [Concomitant]
     Indication: ANGINA PECTORIS
     Route: 048
     Dates: start: 20031025
  8. ESTRADIOL AND NORETHINDRONE ACETATE [Concomitant]
     Indication: HORMONE REPLACEMENT THERAPY
     Route: 048
     Dates: start: 19960701, end: 20010901
  9. ESTRADIOL [Concomitant]
     Indication: HORMONE REPLACEMENT THERAPY
     Route: 061
     Dates: start: 20010901
  10. METHOTREXATE [Concomitant]
     Indication: RHEUMATOID ARTHRITIS
     Route: 048
     Dates: start: 20000701
  11. PREDNISOLONE [Concomitant]
     Indication: RHEUMATOID ARTHRITIS
     Route: 048
     Dates: start: 20000101
  12. FOLIC ACID [Concomitant]
     Indication: RHEUMATOID ARTHRITIS
     Route: 048
     Dates: start: 20000707
  13. INFLIXIMAB [Concomitant]
     Indication: RHEUMATOID ARTHRITIS
     Route: 042
     Dates: start: 20001020
  14. ISOSORBIDE MONONITRATE [Concomitant]
     Indication: ANGINA PECTORIS
     Route: 048
     Dates: start: 20031203
  15. METOPROLOL TARTRATE [Concomitant]
     Indication: ANGINA PECTORIS
     Route: 048
     Dates: start: 20031107, end: 20040101
  16. METOPROLOL TARTRATE [Concomitant]
     Route: 048
     Dates: start: 20040101
  17. ASPIRIN [Concomitant]
     Indication: ANGINA PECTORIS
     Route: 048
     Dates: start: 20031025

REACTIONS (2)
  - ANGINA PECTORIS [None]
  - CORONARY ARTERY STENOSIS [None]
